FAERS Safety Report 5013972-1 (Version None)
Quarter: 2006Q2

REPORT INFORMATION
  Report Type: 
  Country: None (occurrence: None)
  Receive Date: 20060525
  Receipt Date: 20060512
  Transmission Date: 20061013
  Serious: No
  Sender: FDA-Public Use
  Company Number: US200605002791

PATIENT
  Age: 68 Year
  Sex: Male

DRUGS (3)
  1. ZYPREXA [Suspect]
     Indication: BIPOLAR DISORDER
     Dosage: 5 MG, DAILY (1/D), ORAL
     Route: 048
     Dates: start: 20041201
  2. ZYPREXA [Suspect]
     Indication: BIPOLAR DISORDER
     Dosage: 5 MG, DAILY (1/D), INTRAMUSCULAR
     Route: 030
     Dates: start: 20060424
  3. LITHIUM (LITHIUM) [Concomitant]

REACTIONS (12)
  - ACTIVITIES OF DAILY LIVING IMPAIRED [None]
  - BALANCE DISORDER [None]
  - CONSTIPATION [None]
  - DIZZINESS [None]
  - EPISTAXIS [None]
  - FEELING DRUNK [None]
  - FOAMING AT MOUTH [None]
  - GAIT DISTURBANCE [None]
  - HANGOVER [None]
  - HEADACHE [None]
  - MUSCLE SPASMS [None]
  - PHOTOPSIA [None]
